FAERS Safety Report 5198114-4 (Version None)
Quarter: 2006Q4

REPORT INFORMATION
  Report Type: 
  Country: None (occurrence: None)
  Receive Date: 20061228
  Receipt Date: 20061228
  Transmission Date: 20070319
  Serious: Yes (Disabling)
  Sender: FDA-Public Use
  Company Number: None

PATIENT
  Age: 77 Year
  Sex: Male
  Weight: 70.3075 kg

DRUGS (3)
  1. LEVAQUIN [Suspect]
     Indication: INFECTION
     Dosage: 500 MG 1 DAILY
     Dates: start: 20060215
  2. LEVAQUIN [Suspect]
     Indication: INFECTION
     Dosage: 500 MG 1 DAILY
     Dates: start: 20060216
  3. LEVAQUIN [Suspect]
     Indication: INFECTION
     Dosage: 500 MG 1 DAILY
     Dates: start: 20060217

REACTIONS (2)
  - TENDON DISORDER [None]
  - TENDON PAIN [None]
